FAERS Safety Report 12496154 (Version 1)
Quarter: 2016Q2

REPORT INFORMATION
  Report Type: Spontaneous
  Country: BR (occurrence: BR)
  Receive Date: 20160624
  Receipt Date: 20160624
  Transmission Date: 20160815
  Serious: Yes (Other)
  Sender: FDA-Public Use
  Company Number: BR-PFIZER INC-2016307349

PATIENT
  Age: 87 Year
  Sex: Female
  Weight: 70 kg

DRUGS (1)
  1. LYRICA [Suspect]
     Active Substance: PREGABALIN
     Indication: PERIPHERAL NERVE LESION
     Dosage: UNK
     Route: 048
     Dates: start: 20160601, end: 20160609

REACTIONS (7)
  - Hallucination, visual [Recovered/Resolved]
  - Abnormal behaviour [Not Recovered/Not Resolved]
  - Hypoacusis [Unknown]
  - Thyroid disorder [Unknown]
  - Hypertension [Not Recovered/Not Resolved]
  - Metabolic syndrome [Not Recovered/Not Resolved]
  - Gastritis [Unknown]
